FAERS Safety Report 25364009 (Version 1)
Quarter: 2025Q2

REPORT INFORMATION
  Report Type: Spontaneous
  Country: IT (occurrence: IT)
  Receive Date: 20250527
  Receipt Date: 20250527
  Transmission Date: 20250716
  Serious: Yes (Hospitalization, Other)
  Sender: GLAXOSMITHKLINE
  Company Number: None

PATIENT

DRUGS (3)
  1. DOSTARLIMAB [Suspect]
     Active Substance: DOSTARLIMAB
     Indication: Endometrial adenocarcinoma
     Route: 042
     Dates: start: 20240821
  2. DOSTARLIMAB [Suspect]
     Active Substance: DOSTARLIMAB
     Dosage: UNK UNK, Q6W (DOSTARLIMAB Q42 EVERY 6 WEEKS ACCORDING TO MAINTENANCE SCHEDULE (FROM 13-NOV-24))
     Route: 042
     Dates: start: 20241113
  3. DOSTARLIMAB [Suspect]
     Active Substance: DOSTARLIMAB
     Route: 042
     Dates: start: 20250509, end: 20250509

REACTIONS (9)
  - Hypopituitarism [Recovering/Resolving]
  - Atrial fibrillation [Unknown]
  - Invasive ductal breast carcinoma [Unknown]
  - Erysipelas [Unknown]
  - Hypercholesterolaemia [Unknown]
  - Overweight [Unknown]
  - Urinary incontinence [Unknown]
  - Rash papular [Unknown]
  - Dyspnoea [Unknown]

NARRATIVE: CASE EVENT DATE: 20250401
